FAERS Safety Report 24036866 (Version 2)
Quarter: 2024Q3

REPORT INFORMATION
  Report Type: Spontaneous
  Country: US (occurrence: US)
  Receive Date: 20240701
  Receipt Date: 20240930
  Transmission Date: 20241017
  Serious: No
  Sender: BRISTOL MYERS SQUIBB
  Company Number: US-BRISTOL-MYERS SQUIBB COMPANY-2024-103173

PATIENT
  Age: 70 Year
  Sex: Male
  Weight: 96.16 kg

DRUGS (1)
  1. REBLOZYL [Suspect]
     Active Substance: LUSPATERCEPT-AAMT
     Indication: Product used for unknown indication
     Dosage: STRENGTH: 75MG (1) AND 25MG (2)
     Route: 058

REACTIONS (2)
  - Weight decreased [Unknown]
  - Off label use [Unknown]
